FAERS Safety Report 7137793-9 (Version None)
Quarter: 2010Q4

REPORT INFORMATION
  Report Type: 
  Country: None (occurrence: None)
  Receive Date: 20101103
  Receipt Date: 20101015
  Transmission Date: 20110411
  Serious: Yes (Other)
  Sender: FDA-Public Use
  Company Number: US-WYE-H18218210

PATIENT
  Sex: Female

DRUGS (1)
  1. EFFEXOR XR [Suspect]
     Dosage: ON AN UNSPECIFEID DATE, THE DOSAGE OF EFFEXOR XR WAS INCREASED

REACTIONS (1)
  - DRUG EFFECT DELAYED [None]
